FAERS Safety Report 8106230 (Version 3)
Quarter: 2012Q4

REPORT INFORMATION
  Report Type: Report from Study
  Country: FR (occurrence: FR)
  Receive Date: 20110825
  Receipt Date: 20121127
  Transmission Date: 20130627
  Serious: Yes (Hospitalization)
  Sender: FDA-Public Use
  Company Number: FR-ROCHE-798141

PATIENT
  Age: 78 Year
  Sex: Male
  Weight: 88 kg

DRUGS (3)
  1. BEVACIZUMAB [Suspect]
     Indication: NON-SMALL CELL LUNG CANCER
     Dosage: FORM: 15MG/KG
     Route: 042
  2. FENOFIBRATE [Concomitant]
  3. LEVOTHYROX [Concomitant]

REACTIONS (1)
  - Glomerulonephropathy [Recovered/Resolved]
